FAERS Safety Report 13647377 (Version 1)
Quarter: 2017Q2

REPORT INFORMATION
  Report Type: Spontaneous
  Country: FR (occurrence: FR)
  Receive Date: 20170613
  Receipt Date: 20170613
  Transmission Date: 20170830
  Serious: Yes (Disabling)
  Sender: FDA-Public Use
  Company Number: FR-GLAXOSMITHKLINE-FR2017GSK087868

PATIENT
  Age: 17 Year
  Sex: Female

DRUGS (1)
  1. ATOVAQUONE + PROGUANIL BIOGARAN [Suspect]
     Active Substance: ATOVAQUONE\PROGUANIL HYDROCHLORIDE
     Indication: MALARIA PROPHYLAXIS
     Dosage: 1 DF, 1D, UNIT
     Route: 048
     Dates: start: 20160711, end: 20160803

REACTIONS (4)
  - Haematoma [Recovered/Resolved]
  - Cutaneous vasculitis [Recovered/Resolved]
  - Petechiae [Recovered/Resolved]
  - Oedema peripheral [Recovered/Resolved]

NARRATIVE: CASE EVENT DATE: 20160729
